FAERS Safety Report 8949895 (Version 2)
Quarter: 2012Q4

REPORT INFORMATION
  Report Type: 
  Country: DK (occurrence: DK)
  Receive Date: 20121206
  Receipt Date: 20121214
  Transmission Date: 20130627
  Serious: Yes (Hospitalization, Other)
  Sender: FDA-Public Use
  Company Number: DK-PFIZER INC-2012299982

PATIENT
  Age: 55 Year
  Sex: Female

DRUGS (4)
  1. FARMORUBICIN [Suspect]
     Indication: BREAST DUCTAL CARCINOMA
     Dosage: UNK
     Dates: start: 20050629
  2. FLUOROURACIL [Suspect]
     Indication: BREAST DUCTAL CARCINOMA
     Dosage: UNK
     Dates: start: 20050629
  3. SENDOXAN [Suspect]
     Indication: BREAST CANCER
     Dosage: UNK
     Dates: start: 20050629
  4. TAMBOCOR [Concomitant]
     Dosage: UNK
     Dates: start: 20050509

REACTIONS (5)
  - Atrial fibrillation [Unknown]
  - Cardioversion [Unknown]
  - Oedema peripheral [Unknown]
  - Heart rate increased [Unknown]
  - Dyspnoea exertional [Unknown]
